FAERS Safety Report 7654735-8 (Version None)
Quarter: 2011Q3

REPORT INFORMATION
  Report Type: 
  Country: None (occurrence: None)
  Receive Date: 20110804
  Receipt Date: 20110725
  Transmission Date: 20111222
  Serious: No
  Sender: FDA-Public Use
  Company Number: US-BIOGENIDEC-2011BI015987

PATIENT
  Age: 57 Year
  Sex: Female

DRUGS (1)
  1. TYSABRI [Suspect]
     Indication: MULTIPLE SCLEROSIS
     Route: 042
     Dates: start: 20110314

REACTIONS (7)
  - COGNITIVE DISORDER [None]
  - PYREXIA [None]
  - DIZZINESS [None]
  - HEADACHE [None]
  - BLOOD PRESSURE DECREASED [None]
  - NAUSEA [None]
  - FATIGUE [None]
